FAERS Safety Report 5213560-8 (Version None)
Quarter: 2007Q1

REPORT INFORMATION
  Report Type: 
  Country: None (occurrence: None)
  Receive Date: 20070119
  Receipt Date: 20070110
  Transmission Date: 20070707
  Serious: Yes (Hospitalization)
  Sender: FDA-Public Use
  Company Number: CA-ABBOTT-07P-028-0355616-00

PATIENT
  Sex: Male
  Weight: 77 kg

DRUGS (2)
  1. KALETRA [Suspect]
     Indication: HIV INFECTION
     Route: 048
     Dates: start: 20050810
  2. ABACAVIR SULFATE LAMIVUDINE AND ZIDOVUDINE [Concomitant]
     Indication: HIV INFECTION
     Dates: start: 20050810

REACTIONS (3)
  - COMA [None]
  - EAR INFECTION [None]
  - MENINGITIS PNEUMOCOCCAL [None]
